FAERS Safety Report 10721982 (Version 1)
Quarter: 2015Q1

REPORT INFORMATION
  Report Type: Spontaneous
  Country: FR (occurrence: FR)
  Receive Date: 20150119
  Receipt Date: 20150119
  Transmission Date: 20150721
  Serious: Yes (Hospitalization, Other)
  Sender: FDA-Public Use
  Company Number: FR-ELI_LILLY_AND_COMPANY-FR201501002873

PATIENT
  Age: 51 Year
  Sex: Male

DRUGS (9)
  1. OXYCONTIN [Concomitant]
     Active Substance: OXYCODONE HYDROCHLORIDE
     Indication: ARTHRALGIA
     Dosage: UNK, BID
     Route: 065
  2. CARBOPLATINE [Suspect]
     Active Substance: CARBOPLATIN
     Indication: LUNG ADENOCARCINOMA
     Dosage: UNK UNK, CYCLICAL
     Route: 042
     Dates: start: 20140109
  3. ALIMTA [Suspect]
     Active Substance: PEMETREXED DISODIUM
     Indication: LUNG ADENOCARCINOMA
     Dosage: 500 MG/M2, CYCLICAL
     Route: 042
     Dates: start: 20140109
  4. VITAMIN B12 [Suspect]
     Active Substance: CYANOCOBALAMIN
     Indication: LUNG ADENOCARCINOMA
     Dosage: UNK UNK, CYCLICAL
     Route: 030
     Dates: start: 20140109
  5. ACTISKENAN [Concomitant]
     Active Substance: MORPHINE SULFATE
     Indication: ARTHRALGIA
  6. SKENAN [Concomitant]
     Active Substance: MORPHINE SULFATE
     Indication: ARTHRALGIA
  7. ONDANSETRON [Suspect]
     Active Substance: ONDANSETRON
     Indication: LUNG ADENOCARCINOMA
     Dosage: UNK
     Route: 042
     Dates: start: 20140109
  8. OXYNORM [Concomitant]
     Active Substance: OXYCODONE HYDROCHLORIDE
     Indication: ARTHRALGIA
     Dosage: 10 MG, PRN
     Route: 065
  9. METHYLPREDNISOLONE. [Suspect]
     Active Substance: METHYLPREDNISOLONE
     Indication: LUNG ADENOCARCINOMA
     Dosage: UNK
     Route: 042
     Dates: start: 20140109

REACTIONS (11)
  - General physical health deterioration [Recovered/Resolved]
  - Asthenia [Recovered/Resolved]
  - Arthralgia [Unknown]
  - Vomiting [Unknown]
  - Off label use [Unknown]
  - Decreased appetite [Recovered/Resolved]
  - Nausea [Unknown]
  - Weight decreased [Unknown]
  - Constipation [Unknown]
  - Central pain syndrome [Recovered/Resolved]
  - Blood creatinine decreased [Unknown]

NARRATIVE: CASE EVENT DATE: 201401
